FAERS Safety Report 6248816-3 (Version None)
Quarter: 2009Q2

REPORT INFORMATION
  Report Type: 
  Country: None (occurrence: None)
  Receive Date: 20090624
  Receipt Date: 20090609
  Transmission Date: 20091009
  Serious: Yes (Hospitalization, Other)
  Sender: FDA-Public Use
  Company Number: 2009PV038378

PATIENT
  Age: 38 Year
  Sex: Female

DRUGS (10)
  1. SYMLIN [Suspect]
     Indication: INSULIN RESISTANCE
     Dosage: SEE IMAGE, SC
     Route: 058
     Dates: start: 20090401, end: 20090401
  2. SYMLIN [Suspect]
     Indication: INSULIN RESISTANCE
     Dosage: SEE IMAGE, SC
     Route: 058
     Dates: start: 20090401, end: 20090401
  3. SYMLIN [Suspect]
     Indication: INSULIN RESISTANCE
     Dosage: SEE IMAGE, SC
     Route: 058
     Dates: start: 20090407, end: 20090401
  4. SYMLIN [Suspect]
     Indication: INSULIN RESISTANCE
     Dosage: SEE IMAGE, SC
     Route: 058
     Dates: start: 20090401, end: 20090517
  5. SYMLIN [Suspect]
     Indication: INSULIN RESISTANCE
     Dosage: SEE IMAGE, SC
     Route: 058
     Dates: start: 20090604
  6. SYMLIN [Suspect]
     Indication: INSULIN RESISTANCE
     Dosage: TID; SC
     Route: 058
     Dates: start: 20090101, end: 20090401
  7. SYMLIN [Suspect]
     Indication: INSULIN RESISTANCE
     Dosage: TID; SC
     Route: 058
     Dates: start: 20090101, end: 20090101
  8. CYMBALTA [Concomitant]
  9. THYROID MEDICATION [Concomitant]
  10. BYETTA [Concomitant]

REACTIONS (7)
  - ABDOMINAL PAIN [None]
  - BACTERIURIA [None]
  - CHOLELITHIASIS [None]
  - DIZZINESS [None]
  - FALL [None]
  - HYPOGLYCAEMIA UNAWARENESS [None]
  - LOSS OF CONSCIOUSNESS [None]
